FAERS Safety Report 22152684 (Version 1)
Quarter: 2023Q1

REPORT INFORMATION
  Report Type: Spontaneous
  Country: GR (occurrence: GR)
  Receive Date: 20230329
  Receipt Date: 20230329
  Transmission Date: 20230418
  Serious: Yes (Life-Threatening, Hospitalization, Other)
  Sender: FDA-Public Use
  Company Number: GR-AMERICAN REGENT INC-2023000764

PATIENT
  Age: 76 Year
  Sex: Female
  Weight: 75 kg

DRUGS (3)
  1. FERINJECT [Suspect]
     Active Substance: FERRIC CARBOXYMALTOSE
     Indication: Iron deficiency
     Dosage: 2 AMPOULES DILUTED IN 250 ML NORMAL SALINE FOR AROUND 15-30 MINUTES, ONCE (1 IN 1 TOTAL)
     Dates: start: 20230220, end: 20230220
  2. FERINJECT [Suspect]
     Active Substance: FERRIC CARBOXYMALTOSE
     Indication: Gastric haemorrhage
  3. PANTOSEC [Concomitant]
     Indication: Gastric ulcer haemorrhage
     Dosage: 40 MG X2 (40 MG)
     Route: 042
     Dates: start: 20230217

REACTIONS (1)
  - Pulmonary embolism [Recovering/Resolving]

NARRATIVE: CASE EVENT DATE: 20230220
